FAERS Safety Report 23834861 (Version 1)
Quarter: 2024Q2

REPORT INFORMATION
  Report Type: Spontaneous
  Country: DE (occurrence: None)
  Receive Date: 20240509
  Receipt Date: 20240509
  Transmission Date: 20240716
  Serious: Yes (Other)
  Sender: FDA-Public Use
  Company Number: 2024A106898

PATIENT
  Age: 72 Year
  Sex: Male

DRUGS (1)
  1. TEZSPIRE [Suspect]
     Active Substance: TEZEPELUMAB-EKKO
     Dates: start: 2023

REACTIONS (4)
  - Polyneuropathy [Unknown]
  - Bronchiolitis [Unknown]
  - Headache [Unknown]
  - Off label use [Unknown]
